FAERS Safety Report 24919567 (Version 1)
Quarter: 2025Q1

REPORT INFORMATION
  Report Type: Spontaneous
  Country: CN (occurrence: CN)
  Receive Date: 20250204
  Receipt Date: 20250204
  Transmission Date: 20250409
  Serious: Yes (Hospitalization, Other)
  Sender: IPCA
  Company Number: CN-IPCA LABORATORIES LIMITED-IPC-2025-CN-000196

PATIENT

DRUGS (2)
  1. HYDROXYCHLOROQUINE [Suspect]
     Active Substance: HYDROXYCHLOROQUINE
     Indication: Product used for unknown indication
     Route: 048
  2. PREDNISONE ACETATE [Concomitant]
     Active Substance: PREDNISONE ACETATE
     Indication: Product used for unknown indication
     Route: 048

REACTIONS (3)
  - Cystoid macular oedema [Recovered/Resolved]
  - Retinopathy [Recovered/Resolved]
  - Overdose [Unknown]
